FAERS Safety Report 6388837-3 (Version None)
Quarter: 2009Q4

REPORT INFORMATION
  Report Type: 
  Country: None (occurrence: None)
  Receive Date: 20091005
  Receipt Date: 20090929
  Transmission Date: 20100525
  Serious: Yes (Other)
  Sender: FDA-Public Use
  Company Number: BE-B.I. PHARMACEUTICALS,INC./RIDGEFIELD-2009-BP-11500YA

PATIENT
  Sex: Male
  Weight: 75 kg

DRUGS (3)
  1. TAMSULOSIN OCR [Suspect]
     Indication: PROSTATISM
     Dosage: 0.4 MG
     Route: 048
     Dates: start: 20081023, end: 20090508
  2. DYTENZIDE (HYDROCHLOROTHIAZIDE, TRIAMTERENE) [Concomitant]
     Indication: HYPERTENSION
     Dates: start: 20071010
  3. PRAVASTATIN SODIUM [Concomitant]
     Dosage: 40 MG
     Dates: start: 20050713, end: 20090508

REACTIONS (1)
  - DIPLOPIA [None]
